FAERS Safety Report 7410325-3 (Version None)
Quarter: 2011Q2

REPORT INFORMATION
  Report Type: 
  Country: None (occurrence: None)
  Receive Date: 20110412
  Receipt Date: 20110408
  Transmission Date: 20111010
  Serious: Yes (Life-Threatening, Hospitalization)
  Sender: FDA-Public Use
  Company Number: US-B.I. PHARMACEUTICALS,INC./RIDGEFIELD-2011-BP-10491BP

PATIENT
  Sex: Female

DRUGS (1)
  1. PRADAXA [Suspect]
     Route: 048
     Dates: start: 20101201

REACTIONS (3)
  - HYPOTENSION [None]
  - HAEMORRHAGE [None]
  - APPARENT LIFE THREATENING EVENT [None]
